FAERS Safety Report 25805527 (Version 1)
Quarter: 2025Q3

REPORT INFORMATION
  Report Type: Report from Study
  Country: US (occurrence: US)
  Receive Date: 20250916
  Receipt Date: 20250916
  Transmission Date: 20251020
  Serious: Yes (Hospitalization, Other)
  Sender: TAKEDA
  Company Number: US-TAKEDA-2025TUS052122

PATIENT
  Sex: Female
  Weight: 68 kg

DRUGS (5)
  1. LANADELUMAB [Suspect]
     Active Substance: LANADELUMAB
     Indication: Immune system disorder
     Dosage: 300 MILLIGRAM, Q2WEEKS
  2. LANADELUMAB [Suspect]
     Active Substance: LANADELUMAB
  3. LANADELUMAB [Suspect]
     Active Substance: LANADELUMAB
  4. HAEGARDA [Concomitant]
     Active Substance: HUMAN C1-ESTERASE INHIBITOR
  5. RUCONEST [Concomitant]
     Active Substance: CONESTAT ALFA

REACTIONS (3)
  - Appendicitis [Unknown]
  - Pain [Unknown]
  - Inappropriate schedule of product administration [Unknown]
